FAERS Safety Report 9834410 (Version 3)
Quarter: 2014Q1

REPORT INFORMATION
  Report Type: Spontaneous
  Country: JP (occurrence: JP)
  Receive Date: 20140122
  Receipt Date: 20140213
  Transmission Date: 20141002
  Serious: Yes (Hospitalization)
  Sender: FDA-Public Use
  Company Number: JP-ELI_LILLY_AND_COMPANY-JP201310004056

PATIENT
  Sex: Female
  Weight: 36 kg

DRUGS (3)
  1. EVISTA [Suspect]
     Indication: OSTEOPOROSIS
     Dosage: 60 MG, QD
     Route: 048
     Dates: end: 20130720
  2. BEZATOL [Concomitant]
     Indication: HYPERLIPIDAEMIA
     Dosage: 200 MG, BID
     Route: 048
  3. NORVASC [Concomitant]
     Indication: HYPERTENSION
     Dosage: 5 MG, QD
     Route: 048

REACTIONS (2)
  - Groin abscess [Recovering/Resolving]
  - Venous thrombosis limb [Not Recovered/Not Resolved]
